FAERS Safety Report 19515019 (Version 1)
Quarter: 2021Q3

REPORT INFORMATION
  Report Type: Spontaneous
  Country: US (occurrence: US)
  Receive Date: 20210709
  Receipt Date: 20210709
  Transmission Date: 20211014
  Serious: No
  Sender: FDA-Public Use
  Company Number: US-JACOBUS PHARMACEUTICAL COMPANY, INC.-2113675

PATIENT
  Age: 35 Year
  Sex: Female

DRUGS (1)
  1. RUZURGI [Suspect]
     Active Substance: AMIFAMPRIDINE
     Route: 048
     Dates: start: 20210616

REACTIONS (2)
  - Paraesthesia [Unknown]
  - Drug ineffective [Unknown]
